FAERS Safety Report 5117831-5 (Version None)
Quarter: 2006Q3

REPORT INFORMATION
  Report Type: 
  Country: None (occurrence: None)
  Receive Date: 20060926
  Receipt Date: 20060914
  Transmission Date: 20061208
  Serious: Yes (Hospitalization)
  Sender: FDA-Public Use
  Company Number: 2006105100

PATIENT
  Age: 95 Year
  Sex: Female
  Weight: 50 kg

DRUGS (8)
  1. ALDACTONE [Suspect]
     Dosage: 25 MG (EVERY DAY), ORAL
     Dates: end: 20060505
  2. LASIX [Suspect]
     Dosage: 40 MG (EVERY DAY), ORAL
     Route: 048
     Dates: end: 20060504
  3. STABLON (TIANEPTINE) [Suspect]
     Dosage: 25 MG (EVERY DAY), ORAL
     Route: 048
     Dates: end: 20060504
  4. KARDEGIC (ACETYLSALICYLIC LYSINE) [Concomitant]
  5. CORDARONE [Concomitant]
  6. RISPERIDONE [Concomitant]
  7. OMEPRAZOLE [Concomitant]
  8. CLONAZEPAM [Concomitant]

REACTIONS (6)
  - ANOREXIA [None]
  - CREATININE RENAL CLEARANCE INCREASED [None]
  - DYSPHAGIA [None]
  - HYPONATRAEMIA [None]
  - ORAL FUNGAL INFECTION [None]
  - PAIN [None]
